FAERS Safety Report 22126451 (Version 2)
Quarter: 2023Q2

REPORT INFORMATION
  Report Type: Spontaneous
  Country: JP (occurrence: JP)
  Receive Date: 20230322
  Receipt Date: 20230607
  Transmission Date: 20230722
  Serious: Yes (Hospitalization, Other)
  Sender: FDA-Public Use
  Company Number: JP-MSD-M2023-11304

PATIENT
  Age: 8 Decade
  Sex: Female

DRUGS (1)
  1. KEYTRUDA [Suspect]
     Active Substance: PEMBROLIZUMAB
     Indication: Non-small cell lung cancer stage IV
     Dosage: 400 MILLIGRAM, EVERY 6 WEEKS
     Route: 041
     Dates: start: 20230201, end: 20230201

REACTIONS (2)
  - Cardiac tamponade [Recovering/Resolving]
  - Endocarditis [Unknown]

NARRATIVE: CASE EVENT DATE: 20230301
